FAERS Safety Report 15490466 (Version 3)
Quarter: 2019Q2

REPORT INFORMATION
  Report Type: Spontaneous
  Country: US (occurrence: US)
  Receive Date: 20181011
  Receipt Date: 20190514
  Transmission Date: 20190711
  Serious: Yes (Hospitalization)
  Sender: FDA-Public Use
  Company Number: US-ACTELION-A-NJ2018-178408

PATIENT
  Sex: Female

DRUGS (1)
  1. OPSUMIT [Suspect]
     Active Substance: MACITENTAN
     Indication: PRODUCT USED FOR UNKNOWN INDICATION
     Dosage: 10 MG, UNK
     Route: 048
     Dates: start: 20180802

REACTIONS (8)
  - Chest pain [Unknown]
  - Weight decreased [Unknown]
  - Dizziness [Not Recovered/Not Resolved]
  - Abdominal distension [Unknown]
  - Abdominal pain upper [Unknown]
  - Hypotension [Not Recovered/Not Resolved]
  - Memory impairment [Unknown]
  - Product dose omission [Unknown]
